FAERS Safety Report 10667071 (Version 1)
Quarter: 2014Q4

REPORT INFORMATION
  Report Type: Spontaneous
  Country: IN (occurrence: IN)
  Receive Date: 20141222
  Receipt Date: 20141222
  Transmission Date: 20150529
  Serious: Yes (Other)
  Sender: FDA-Public Use
  Company Number: IN-ACCORD-027736

PATIENT
  Age: 27 Year
  Sex: Male

DRUGS (1)
  1. MITOMYCIN. [Suspect]
     Active Substance: MITOMYCIN
     Indication: OPEN ANGLE GLAUCOMA
     Dosage: 0.04% FOR 3 MIN

REACTIONS (2)
  - Conjunctival filtering bleb leak [Recovered/Resolved]
  - Conjunctival ulcer [Recovered/Resolved]
